FAERS Safety Report 6091044-5 (Version None)
Quarter: 2009Q1

REPORT INFORMATION
  Report Type: 
  Country: None (occurrence: None)
  Receive Date: 20090225
  Receipt Date: 20090216
  Transmission Date: 20090719
  Serious: No
  Sender: FDA-Public Use
  Company Number: US-SOLVAY-00209000886

PATIENT
  Age: 603 Month
  Sex: Female
  Weight: 61.363 kg

DRUGS (3)
  1. ANDROGEL [Suspect]
     Indication: ACCIDENTAL EXPOSURE
     Dosage: DAILY DOSE: 5 GRAM(S), VIA PUMP
     Route: 062
     Dates: start: 20080201, end: 20080501
  2. ANDROGEL [Suspect]
     Dosage: DAILY DOSE: 5 GRAM(S), VIA PUMP
     Route: 062
     Dates: start: 20081101
  3. SYNTHROID [Concomitant]
     Indication: HYPOTHYROIDISM
     Dosage: DAILY DOSE: 75 MICROGRAM(S)
     Route: 048

REACTIONS (1)
  - ALOPECIA [None]
